FAERS Safety Report 8942254 (Version 1)
Quarter: 2012Q4

REPORT INFORMATION
  Report Type: Spontaneous
  Country: US (occurrence: None)
  Receive Date: 20121129
  Receipt Date: 20121129
  Transmission Date: 20130627
  Serious: Yes (Hospitalization)
  Sender: FDA-Public Use
  Company Number: None

PATIENT
  Age: 35 Year
  Sex: Female

DRUGS (1)
  1. DULOXETINE [Suspect]
     Indication: DEPRESSION
     Route: 048
     Dates: end: 20120216

REACTIONS (15)
  - Anxiety [None]
  - Nightmare [None]
  - Sleep terror [None]
  - Anger [None]
  - Condition aggravated [None]
  - Social avoidant behaviour [None]
  - Feeling guilty [None]
  - Initial insomnia [None]
  - Middle insomnia [None]
  - Scratch [None]
  - Weight decreased [None]
  - Asthenia [None]
  - Depression [None]
  - Agitation [None]
  - Mood swings [None]
